FAERS Safety Report 14977052 (Version 2)
Quarter: 2018Q3

REPORT INFORMATION
  Report Type: Report from Study
  Country: None (occurrence: AT)
  Receive Date: 20180606
  Receipt Date: 20180901
  Transmission Date: 20181010
  Serious: Yes (Other)
  Sender: FDA-Public Use
  Company Number: AT-ABBVIE-18K-009-2377622-00

PATIENT
  Sex: Male

DRUGS (2)
  1. HUMIRA [Suspect]
     Active Substance: ADALIMUMAB
     Indication: CROHN^S DISEASE
     Route: 058
     Dates: start: 20171115, end: 201808
  2. HUMIRA [Suspect]
     Active Substance: ADALIMUMAB
     Route: 058
     Dates: start: 201808

REACTIONS (5)
  - Deafness unilateral [Not Recovered/Not Resolved]
  - Gastric disorder [Not Recovered/Not Resolved]
  - Crohn^s disease [Recovering/Resolving]
  - Nasopharyngitis [Not Recovered/Not Resolved]
  - Campylobacter infection [Recovering/Resolving]

NARRATIVE: CASE EVENT DATE: 2018
